FAERS Safety Report 20732629 (Version 3)
Quarter: 2022Q3

REPORT INFORMATION
  Report Type: Report from Study
  Country: US (occurrence: US)
  Receive Date: 20220420
  Receipt Date: 20220824
  Transmission Date: 20221027
  Serious: Yes (Life-Threatening, Hospitalization)
  Sender: FDA-Public Use
  Company Number: US-NOVARTISPH-NVSC2022US083931

PATIENT
  Age: 51 Year
  Sex: Female
  Weight: 89.977 kg

DRUGS (30)
  1. FLUDARABINE PHOSPHATE [Suspect]
     Active Substance: FLUDARABINE PHOSPHATE
     Indication: Ovarian cancer
     Dosage: 50 MG (25MG/M^2/DAY), QD
     Route: 042
     Dates: start: 20220314, end: 20220318
  2. CYCLOPHOSPHAMIDE [Suspect]
     Active Substance: CYCLOPHOSPHAMIDE
     Indication: Ovarian cancer
     Dosage: UNK UNK, QD (60 MG/KG/DAY)
     Route: 042
     Dates: start: 20220314, end: 20220315
  3. CYCLOPHOSPHAMIDE [Suspect]
     Active Substance: CYCLOPHOSPHAMIDE
     Dosage: UNK UNK, QD (60 MG/KG)
     Route: 042
     Dates: start: 20220408
  4. ALDESLEUKIN [Suspect]
     Active Substance: ALDESLEUKIN
     Indication: Ovarian cancer
     Dosage: (52 MILLION UNITS), Q8H
     Route: 042
     Dates: start: 20220322, end: 20220322
  5. MAGNESIUM OXIDE [Concomitant]
     Active Substance: MAGNESIUM OXIDE
     Indication: Hypomagnesaemia
     Dosage: 400 MG, QD
     Route: 048
     Dates: start: 20220210
  6. NAPROSYN [Concomitant]
     Active Substance: NAPROXEN
     Indication: Arthralgia
     Dosage: 500 MG, PRN
     Route: 048
     Dates: start: 20220210
  7. ATORVASTATIN [Concomitant]
     Active Substance: ATORVASTATIN
     Indication: Hypertransaminasaemia
     Dosage: UNK
     Route: 048
  8. INSULIN GLARGINE [Concomitant]
     Active Substance: INSULIN GLARGINE
     Indication: Diabetes mellitus
     Dosage: UNK, BID (20)
     Route: 058
  9. INSULIN GLARGINE [Concomitant]
     Active Substance: INSULIN GLARGINE
     Indication: Hyperglycaemia
  10. MIRALAX [Concomitant]
     Active Substance: POLYETHYLENE GLYCOL 3350
     Indication: Constipation
     Dosage: UNK, PRN (PACK)
     Route: 048
  11. METFORMIN HYDROCHLORIDE [Concomitant]
     Active Substance: METFORMIN HYDROCHLORIDE
     Indication: Diabetes mellitus
     Dosage: 500 MG, BID
     Route: 048
  12. METFORMIN HYDROCHLORIDE [Concomitant]
     Active Substance: METFORMIN HYDROCHLORIDE
     Indication: Hyperglycaemia
  13. COLACE [Concomitant]
     Active Substance: DOCUSATE SODIUM
     Indication: Constipation
     Dosage: 100 MG, QD
     Route: 048
  14. ACYCLOVIR [Concomitant]
     Active Substance: ACYCLOVIR
     Indication: Product used for unknown indication
     Dosage: 400 MG, BID
     Route: 048
     Dates: start: 20220321, end: 20220321
  15. ACYCLOVIR [Concomitant]
     Active Substance: ACYCLOVIR
     Dosage: 100 MG, Q12H (INJECTION)
     Route: 042
     Dates: start: 20220321, end: 20220402
  16. ACYCLOVIR [Concomitant]
     Active Substance: ACYCLOVIR
     Dosage: 400 MG, TID
     Route: 048
     Dates: start: 20220403, end: 20220405
  17. ACYCLOVIR [Concomitant]
     Active Substance: ACYCLOVIR
     Dosage: 400 MG, BID
     Route: 048
     Dates: start: 20220405, end: 20220408
  18. LEVOFLOXACIN [Concomitant]
     Active Substance: LEVOFLOXACIN
     Indication: Product used for unknown indication
     Dosage: 750 MG, Q24H
     Route: 042
     Dates: start: 20220321, end: 20220321
  19. FLUCONAZOLE [Concomitant]
     Active Substance: FLUCONAZOLE
     Indication: Product used for unknown indication
     Dosage: 400 MG, QD
     Route: 048
     Dates: start: 20220321, end: 20220325
  20. VORICONAZOLE [Concomitant]
     Active Substance: VORICONAZOLE
     Indication: Product used for unknown indication
     Dosage: 200 MG, BID
     Route: 048
     Dates: start: 20220326, end: 20220408
  21. PIPERACILLIN AND TAZOBACTAM [Concomitant]
     Active Substance: PIPERACILLIN SODIUM\TAZOBACTAM SODIUM
     Indication: Product used for unknown indication
     Dosage: 4.5 G, ONCE/SINGLE
     Route: 042
     Dates: start: 20220321, end: 20220321
  22. PIPERACILLIN AND TAZOBACTAM [Concomitant]
     Active Substance: PIPERACILLIN SODIUM\TAZOBACTAM SODIUM
     Dosage: 4.5 G, Q8H
     Route: 042
     Dates: start: 20220326, end: 20220326
  23. MEROPENEM [Concomitant]
     Active Substance: MEROPENEM
     Indication: Product used for unknown indication
     Dosage: 500 MG, Q6H
     Route: 042
     Dates: start: 20220325, end: 20220408
  24. CEFAZOLIN [Concomitant]
     Active Substance: CEFAZOLIN
     Indication: Product used for unknown indication
     Dosage: 2 G, Q8H
     Route: 042
     Dates: start: 20220321, end: 20220325
  25. VANCOMYCIN [Concomitant]
     Active Substance: VANCOMYCIN
     Indication: Product used for unknown indication
     Dosage: 1750 MG, ONCE/SINGLE
     Route: 042
     Dates: start: 20220321, end: 20220321
  26. VANCOMYCIN [Concomitant]
     Active Substance: VANCOMYCIN
     Dosage: 1.5 G, Q12H
     Route: 042
     Dates: start: 20220322, end: 20220322
  27. VANCOMYCIN [Concomitant]
     Active Substance: VANCOMYCIN
     Dosage: 1 G, Q12H
     Route: 042
     Dates: start: 20220324, end: 20220324
  28. VANCOMYCIN [Concomitant]
     Active Substance: VANCOMYCIN
     Dosage: 750 MG, Q12H
     Route: 042
     Dates: start: 20220325, end: 20220402
  29. VANCOMYCIN [Concomitant]
     Active Substance: VANCOMYCIN
     Dosage: 1 G, Q12H
     Route: 042
     Dates: start: 20220403, end: 20220403
  30. FILGRASTIM [Concomitant]
     Active Substance: FILGRASTIM
     Indication: Product used for unknown indication
     Dosage: UNK, 10 DAYS
     Route: 065
     Dates: start: 20220322

REACTIONS (27)
  - Thrombocytopenia [Recovered/Resolved with Sequelae]
  - Febrile neutropenia [Recovered/Resolved]
  - Red cell distribution width increased [Unknown]
  - Haematocrit decreased [Unknown]
  - Monocyte count decreased [Unknown]
  - Basophil count decreased [Unknown]
  - White blood cells urine positive [Unknown]
  - Urinary sediment present [Unknown]
  - Urobilinogen urine increased [Unknown]
  - Eosinophil count decreased [Unknown]
  - T-lymphocyte count increased [Unknown]
  - CD4 lymphocytes decreased [Unknown]
  - CD8 lymphocyte percentage increased [Unknown]
  - CD4/CD8 ratio decreased [Unknown]
  - Reticulocyte count decreased [Unknown]
  - T-lymphocyte count decreased [Unknown]
  - Blood lactate dehydrogenase increased [Unknown]
  - Red blood cell count decreased [Unknown]
  - Haemoglobin decreased [Unknown]
  - Mean cell volume decreased [Unknown]
  - Lymphocyte count decreased [Unknown]
  - Mean cell haemoglobin decreased [Unknown]
  - Mean cell haemoglobin concentration decreased [Unknown]
  - White blood cell count decreased [Unknown]
  - Platelet count decreased [Unknown]
  - Neutrophil count decreased [Unknown]
  - Red blood cells urine positive [Unknown]

NARRATIVE: CASE EVENT DATE: 20220314
